FAERS Safety Report 7620149-X (Version None)
Quarter: 2011Q3

REPORT INFORMATION
  Report Type: 
  Country: None (occurrence: None)
  Receive Date: 20110719
  Receipt Date: 20110707
  Transmission Date: 20111222
  Serious: Yes (Other)
  Sender: FDA-Public Use
  Company Number: MX-BAYER-2011-058319

PATIENT
  Age: 35 Year
  Sex: Female
  Weight: 96 kg

DRUGS (1)
  1. CLOTRIMAZOLE [Suspect]
     Indication: VAGINAL INFECTION
     Dosage: 2 G, QD
     Route: 067
     Dates: start: 20110702, end: 20110704

REACTIONS (2)
  - VAGINAL HAEMORRHAGE [None]
  - GENITAL RASH [None]
